FAERS Safety Report 17523005 (Version 1)
Quarter: 2020Q1

REPORT INFORMATION
  Report Type: Spontaneous
  Country: US (occurrence: US)
  Receive Date: 20200310
  Receipt Date: 20200310
  Transmission Date: 20200409
  Serious: No
  Sender: FDA-Public Use
  Company Number: US-GW PHARMA-202002USGW00816

PATIENT

DRUGS (14)
  1. EPIDIOLEX [Suspect]
     Active Substance: CANNABIDIOL
     Indication: LENNOX-GASTAUT SYNDROME
     Dosage: 4.9 MG/KG/DAY, 150 MILLIGRAM, BID
     Route: 048
     Dates: start: 201907, end: 20191214
  2. VALPROIC ACID. [Concomitant]
     Active Substance: VALPROIC ACID
     Indication: PRODUCT USED FOR UNKNOWN INDICATION
     Dosage: 49 MILLILITER, QD (16 ML IN THE MORNING, 16 ML IN THE EVENING AND 17 ML AT BEDTIME)
     Route: 048
     Dates: start: 20190913
  3. CLOZAPINE. [Concomitant]
     Active Substance: CLOZAPINE
     Indication: PRODUCT USED FOR UNKNOWN INDICATION
     Dosage: 100 MILLIGRAM, BID
     Route: 048
     Dates: start: 20200205
  4. LEVOCARNITINE. [Concomitant]
     Active Substance: LEVOCARNITINE
     Indication: PRODUCT USED FOR UNKNOWN INDICATION
     Dosage: 330 MILLIGRAM, TID
     Route: 048
     Dates: start: 20160825
  5. SERTRALINE [Concomitant]
     Active Substance: SERTRALINE HYDROCHLORIDE
     Indication: PRODUCT USED FOR UNKNOWN INDICATION
     Dosage: 200 MILLIGRAM, QD (QPM)
     Route: 048
     Dates: start: 20200213
  6. ONFI [Concomitant]
     Active Substance: CLOBAZAM
     Indication: PRODUCT USED FOR UNKNOWN INDICATION
     Dosage: 10 MILLIGRAM, BID
     Route: 048
     Dates: start: 20190603
  7. CLOZAPINE. [Concomitant]
     Active Substance: CLOZAPINE
     Dosage: 25 MILLIGRAM, BID
     Route: 048
     Dates: start: 202002
  8. IBUPROFEN. [Concomitant]
     Active Substance: IBUPROFEN
     Indication: PYREXIA
     Dosage: UNK, Q6H PRN AS NEEDED
     Route: 048
     Dates: start: 20130823
  9. EPIDIOLEX [Suspect]
     Active Substance: CANNABIDIOL
     Dosage: UNK (DOSE WEANED)
     Route: 048
     Dates: start: 20191215, end: 202001
  10. CLONIDINE. [Concomitant]
     Active Substance: CLONIDINE
     Indication: PRODUCT USED FOR UNKNOWN INDICATION
     Dosage: 0.1 MILLIGRAM, TID
     Route: 048
     Dates: start: 20200213
  11. NYSTATIN. [Concomitant]
     Active Substance: NYSTATIN
     Indication: DERMATITIS DIAPER
     Dosage: 1 DOSAGE FORM, TID (1 APP)
     Route: 061
     Dates: start: 20130318
  12. ZONISAMIDE. [Concomitant]
     Active Substance: ZONISAMIDE
     Indication: PRODUCT USED FOR UNKNOWN INDICATION
     Dosage: 9 MILLILITER, BID
     Route: 048
     Dates: start: 20200104
  13. CLOZAPINE. [Concomitant]
     Active Substance: CLOZAPINE
     Indication: PRODUCT USED FOR UNKNOWN INDICATION
     Dosage: 50 MILLIGRAM, BID
     Route: 048
     Dates: start: 20200205
  14. CLOZAPINE. [Concomitant]
     Active Substance: CLOZAPINE
     Indication: PRODUCT USED FOR UNKNOWN INDICATION
     Dosage: 25 MILLIGRAM, QD (QAM)
     Route: 048
     Dates: start: 20200205, end: 202002

REACTIONS (1)
  - Abnormal behaviour [Recovered/Resolved]
